FAERS Safety Report 8369421-9 (Version None)
Quarter: 2012Q2

REPORT INFORMATION
  Report Type: 
  Country: None (occurrence: None)
  Receive Date: 20120516
  Receipt Date: 20120516
  Transmission Date: 20120825
  Serious: Yes (Life-Threatening)
  Sender: FDA-Public Use
  Company Number: None

PATIENT
  Age: 48 Year
  Sex: Female
  Weight: 49.4421 kg

DRUGS (1)
  1. PLAQUENIL [Suspect]
     Indication: CONVULSION

REACTIONS (1)
  - LOSS OF CONSCIOUSNESS [None]
